FAERS Safety Report 25448276 (Version 1)
Quarter: 2025Q2

REPORT INFORMATION
  Report Type: Spontaneous
  Country: CN (occurrence: CN)
  Receive Date: 20250617
  Receipt Date: 20250617
  Transmission Date: 20250716
  Serious: Yes (Hospitalization)
  Sender: ABBVIE
  Company Number: CN-ABBVIE-6327607

PATIENT
  Age: 37 Year
  Sex: Female
  Weight: 57 kg

DRUGS (3)
  1. VENETOCLAX [Suspect]
     Active Substance: VENETOCLAX
     Indication: Acute myeloid leukaemia
     Route: 048
     Dates: start: 20250507, end: 20250513
  2. CYTARABINE [Suspect]
     Active Substance: CYTARABINE
     Indication: Acute myeloid leukaemia
     Route: 041
     Dates: start: 20250508, end: 20250510
  3. CYTARABINE [Concomitant]
     Active Substance: CYTARABINE
     Indication: Chemotherapy
     Dates: start: 20250507

REACTIONS (5)
  - Myelosuppression [Recovering/Resolving]
  - Granulocyte count decreased [Recovering/Resolving]
  - Pneumonia [Unknown]
  - Breath sounds abnormal [Unknown]
  - Oropharyngeal pain [Unknown]

NARRATIVE: CASE EVENT DATE: 20250519
